FAERS Safety Report 11914525 (Version 7)
Quarter: 2018Q1

REPORT INFORMATION
  Report Type: Report from Study
  Country: FR (occurrence: FR)
  Receive Date: 20160113
  Receipt Date: 20180307
  Transmission Date: 20180508
  Serious: Yes (Life-Threatening, Hospitalization)
  Sender: FDA-Public Use
  Company Number: FR-JNJFOC-20151106378

PATIENT
  Age: 42 Year
  Sex: Female
  Weight: 47 kg

DRUGS (39)
  1. XANAX [Concomitant]
     Active Substance: ALPRAZOLAM
     Route: 048
  2. ACTISKENAN [Concomitant]
     Active Substance: MORPHINE SULFATE
     Dosage: 1 TABLET AT 4 PM AND AT 8 PM
     Route: 048
  3. SIMPONI [Suspect]
     Active Substance: GOLIMUMAB
     Indication: ANKYLOSING SPONDYLITIS
     Route: 058
     Dates: start: 20151010
  4. SIMPONI [Suspect]
     Active Substance: GOLIMUMAB
     Indication: ANKYLOSING SPONDYLITIS
     Dosage: INJECTION 6
     Route: 058
     Dates: start: 20160228
  5. PROTHIADEN [Concomitant]
     Active Substance: DOTHIEPIN HYDROCHLORIDE
     Dosage: EVERY EVENING
     Route: 065
     Dates: start: 2009
  6. XANAX [Concomitant]
     Active Substance: ALPRAZOLAM
     Route: 048
  7. IMOVANE [Concomitant]
     Active Substance: ZOPICLONE
     Dosage: ONE IN THE EVENING AT BEDTIME
     Route: 065
  8. BI-PROFENID [Concomitant]
     Active Substance: KETOPROFEN
     Dosage: 10 LP BID
     Route: 065
  9. ACTISKENAN [Concomitant]
     Active Substance: MORPHINE SULFATE
     Dosage: 2 DF DAILY
     Route: 048
  10. DOLIPRANE [Concomitant]
     Active Substance: ACETAMINOPHEN
     Dosage: PRN (AS REQUIRED)
     Route: 065
  11. HYDROCORTISONE. [Concomitant]
     Active Substance: HYDROCORTISONE
     Dosage: 10 BID (DOUBLE OR TRIPLE IF FEVER OR DIARRHEA)
     Route: 065
     Dates: start: 2016
  12. XANAX [Concomitant]
     Active Substance: ALPRAZOLAM
     Route: 048
  13. TRIFLUCAN [Concomitant]
     Active Substance: FLUCONAZOLE
     Route: 065
     Dates: start: 201601
  14. SIMPONI [Suspect]
     Active Substance: GOLIMUMAB
     Indication: ANKYLOSING SPONDYLITIS
     Route: 058
     Dates: start: 20150717
  15. SIMPONI [Suspect]
     Active Substance: GOLIMUMAB
     Indication: ANKYLOSING SPONDYLITIS
     Dosage: INJECTION 7
     Route: 058
     Dates: start: 20160328, end: 201604
  16. INEXIUM [Concomitant]
     Active Substance: ESOMEPRAZOLE
     Dosage: ONE IN MORNING AND ONE IN EVENING
     Route: 048
     Dates: start: 2007
  17. ACTISKENAN [Concomitant]
     Active Substance: MORPHINE SULFATE
     Dosage: 50 MG AT 8 AM AND 2 PM + 10 MG AT BEDTIME
     Route: 048
  18. ACTISKENAN [Concomitant]
     Active Substance: MORPHINE SULFATE
     Route: 048
     Dates: start: 2013
  19. FUNGIZONE [Concomitant]
     Active Substance: AMPHOTERICIN B
     Route: 065
     Dates: start: 201601
  20. SIMPONI [Suspect]
     Active Substance: GOLIMUMAB
     Indication: ANKYLOSING SPONDYLITIS
     Dosage: INJECTION NUMBER 4
     Route: 058
     Dates: start: 20151228
  21. XANAX [Concomitant]
     Active Substance: ALPRAZOLAM
     Route: 048
     Dates: start: 2009
  22. RULID [Concomitant]
     Active Substance: ROXITHROMYCIN
     Route: 065
     Dates: start: 20160208
  23. DAFALGAN [Concomitant]
     Active Substance: ACETAMINOPHEN
     Dosage: 1 G ON MORNING, MIDDAY AND EVENING
     Route: 065
  24. ACTISKENAN [Concomitant]
     Active Substance: MORPHINE SULFATE
     Dosage: 80 MG 1 TABLET AT 4 PM AND AT 8 PM + 10 MG AT BEDTIME
     Route: 048
  25. LYRICA [Concomitant]
     Active Substance: PREGABALIN
     Dosage: ON MORNING, MIDDAY AND EVENING
     Route: 048
  26. PROTHIADEN [Concomitant]
     Active Substance: DOTHIEPIN HYDROCHLORIDE
     Dosage: 2 CAPSULES ON EVENING
     Route: 065
  27. DIPROSONE [Concomitant]
     Active Substance: BETAMETHASONE DIPROPIONATE
     Route: 065
  28. SYMBICORT [Concomitant]
     Active Substance: BUDESONIDE\FORMOTEROL FUMARATE DIHYDRATE
     Route: 065
  29. PARACETAMOL [Concomitant]
     Active Substance: ACETAMINOPHEN
     Route: 065
  30. ESTROGEL [Concomitant]
     Active Substance: ESTRADIOL
     Route: 065
     Dates: start: 2016
  31. SIMPONI [Suspect]
     Active Substance: GOLIMUMAB
     Indication: ANKYLOSING SPONDYLITIS
     Route: 058
     Dates: start: 20150910
  32. SIMPONI [Suspect]
     Active Substance: GOLIMUMAB
     Indication: ANKYLOSING SPONDYLITIS
     Route: 058
  33. SIMPONI [Suspect]
     Active Substance: GOLIMUMAB
     Indication: ANKYLOSING SPONDYLITIS
     Route: 058
     Dates: start: 201605, end: 201606
  34. MOBIC [Concomitant]
     Active Substance: MELOXICAM
     Dosage: DAILY DURING 4 DAYS EVERY MONTH
     Route: 065
  35. MOVICOL [Concomitant]
     Active Substance: POLYETHYLENE GLYCOL 3350\POTASSIUM CHLORIDE\SODIUM BICARBONATE\SODIUM CHLORIDE
     Dosage: 1 ON MORNING AND MIDDAY
     Route: 065
  36. MOVICOL [Concomitant]
     Active Substance: POLYETHYLENE GLYCOL 3350\POTASSIUM CHLORIDE\SODIUM BICARBONATE\SODIUM CHLORIDE
     Route: 065
  37. BI-PROFENID [Concomitant]
     Active Substance: KETOPROFEN
     Dosage: 100 LP: 1 ON MORNING AND EVENING
     Route: 065
  38. LYRICA [Concomitant]
     Active Substance: PREGABALIN
     Route: 048
     Dates: start: 2011
  39. OXYNORMORO [Concomitant]
     Active Substance: OXYCODONE HYDROCHLORIDE
     Indication: ANKYLOSING SPONDYLITIS
     Route: 065
     Dates: start: 20150710

REACTIONS (27)
  - Morbid thoughts [Unknown]
  - Treatment failure [Unknown]
  - Malaise [Unknown]
  - Depression [Unknown]
  - Fibromyalgia [Unknown]
  - Hospitalisation [Recovered/Resolved]
  - Cachexia [Unknown]
  - Depersonalisation/derealisation disorder [Unknown]
  - Periorbital oedema [Unknown]
  - Malnutrition [Unknown]
  - Adverse event [Unknown]
  - Oedema peripheral [Unknown]
  - Ankylosing spondylitis [Unknown]
  - Tooth disorder [Unknown]
  - Decreased interest [Unknown]
  - Hyperaesthesia [Unknown]
  - Off label use [Unknown]
  - Mental disorder [Unknown]
  - Anorexia nervosa [Unknown]
  - Discomfort [Unknown]
  - Nail psoriasis [Not Recovered/Not Resolved]
  - Neoplasm [Unknown]
  - Therapeutic response decreased [Unknown]
  - General physical health deterioration [Unknown]
  - Fatigue [Unknown]
  - Inappropriate schedule of drug administration [Unknown]
  - Asthenia [Unknown]

NARRATIVE: CASE EVENT DATE: 2015
